FAERS Safety Report 4772853-9 (Version None)
Quarter: 2005Q3

REPORT INFORMATION
  Report Type: 
  Country: None (occurrence: None)
  Receive Date: 20050916
  Receipt Date: 20050907
  Transmission Date: 20060218
  Serious: Yes (Hospitalization)
  Sender: FDA-Public Use
  Company Number: HQWYE330709SEP05

PATIENT
  Age: 56 Year
  Sex: Female

DRUGS (2)
  1. RAPAMUNE [Suspect]
     Indication: IMMUNOSUPPRESSANT DRUG THERAPY
     Dosage: 1 MG 1X PER 1 DAY ORAL
     Route: 048
     Dates: start: 20030801, end: 20040601
  2. PREDNISONE [Concomitant]

REACTIONS (11)
  - ALOPECIA [None]
  - CELLULITIS [None]
  - COLLAGEN DISORDER [None]
  - ENTEROBACTER INFECTION [None]
  - OEDEMA PERIPHERAL [None]
  - PARAKERATOSIS [None]
  - RASH PRURITIC [None]
  - SCAR [None]
  - SKIN CANDIDA [None]
  - SKIN INFLAMMATION [None]
  - STAPHYLOCOCCAL INFECTION [None]
